FAERS Safety Report 8117395-8 (Version None)
Quarter: 2012Q1

REPORT INFORMATION
  Report Type: 
  Country: None (occurrence: None)
  Receive Date: 20120206
  Receipt Date: 20120126
  Transmission Date: 20120608
  Serious: Yes (Hospitalization, Other)
  Sender: FDA-Public Use
  Company Number: US-ASTRAZENECA-2012SE05793

PATIENT
  Age: 58 Year
  Sex: Female

DRUGS (2)
  1. TOPROL-XL [Concomitant]
  2. SYMBICORT [Suspect]
     Route: 055

REACTIONS (5)
  - CARDIAC INFECTION [None]
  - FOOT FRACTURE [None]
  - CARDIAC FAILURE [None]
  - FALL [None]
  - COUGH [None]
